FAERS Safety Report 7259535-9 (Version None)
Quarter: 2011Q1

REPORT INFORMATION
  Report Type: 
  Country: None (occurrence: None)
  Receive Date: 20110129
  Receipt Date: 20100802
  Transmission Date: 20110831
  Serious: No
  Sender: FDA-Public Use
  Company Number: US-PFIZER INC-2010097278

PATIENT
  Sex: Female

DRUGS (1)
  1. RELPAX [Suspect]

REACTIONS (3)
  - FEELING ABNORMAL [None]
  - ABDOMINAL PAIN UPPER [None]
  - AGITATION [None]
